FAERS Safety Report 4932306-1 (Version None)
Quarter: 2006Q1

REPORT INFORMATION
  Report Type: 
  Country: None (occurrence: None)
  Receive Date: 20060228
  Receipt Date: 20060217
  Transmission Date: 20060701
  Serious: Yes (Death)
  Sender: FDA-Public Use
  Company Number: 200601438

PATIENT
  Age: 51 Year
  Sex: Male

DRUGS (13)
  1. ALESION (EPINASTINE) [Suspect]
     Indication: RASH PRURITIC
     Dosage: 20 MG DAILY PO
     Route: 048
     Dates: start: 20051228, end: 20060202
  2. DANTRIUM [Concomitant]
  3. DEPAKENE [Concomitant]
  4. HARNAL [Concomitant]
  5. BIOTIN [Concomitant]
  6. RINDERON VG [Concomitant]
  7. ISOZOL [Concomitant]
  8. MUSCULAX [Concomitant]
  9. LAUGHING GAS [Concomitant]
  10. SEVOFRANE [Concomitant]
  11. FENTANEST [Concomitant]
  12. ANAPEINE [Concomitant]
  13. CEFAZOLIN SODIUM                   09 [Concomitant]

REACTIONS (6)
  - ATRIAL FIBRILLATION [None]
  - CARDIAC ARREST [None]
  - ELECTROCARDIOGRAM QT PROLONGED [None]
  - POST PROCEDURAL COMPLICATION [None]
  - VENTRICULAR FIBRILLATION [None]
  - VENTRICULAR TACHYCARDIA [None]
